FAERS Safety Report 8234248-5 (Version None)
Quarter: 2012Q1

REPORT INFORMATION
  Report Type: 
  Country: None (occurrence: None)
  Receive Date: 20120326
  Receipt Date: 20120316
  Transmission Date: 20120608
  Serious: Yes (Hospitalization)
  Sender: FDA-Public Use
  Company Number: JP-VERTEX PHARMACEUTICALS INC.-AE-2012-004088

PATIENT
  Age: 70 Year
  Sex: Male

DRUGS (3)
  1. REBETOL [Concomitant]
     Indication: HEPATITIS C
     Route: 048
     Dates: start: 20111209, end: 20120219
  2. TELAVIC (TELAPREVIR) [Suspect]
     Indication: HEPATITIS C
     Route: 048
     Dates: start: 20111209, end: 20120219
  3. PEGINTERON [Concomitant]
     Indication: HEPATITIS C
     Route: 058
     Dates: start: 20111209, end: 20120217

REACTIONS (6)
  - RASH [None]
  - PANCYTOPENIA [None]
  - DIABETIC KETOACIDOSIS [None]
  - NAUSEA [None]
  - HEPATIC FUNCTION ABNORMAL [None]
  - MALNUTRITION [None]
